FAERS Safety Report 23625544 (Version 2)
Quarter: 2024Q4

REPORT INFORMATION
  Report Type: Spontaneous
  Country: FR (occurrence: FR)
  Receive Date: 20240313
  Receipt Date: 20241206
  Transmission Date: 20250115
  Serious: Yes (Hospitalization, Other)
  Sender: SANDOZ
  Company Number: None

PATIENT
  Age: 53 Year
  Sex: Male

DRUGS (6)
  1. MYCOPHENOLATE MOFETIL [Suspect]
     Active Substance: MYCOPHENOLATE MOFETIL
     Indication: Immunosuppressant drug therapy
     Dosage: 250 MG,QD
     Route: 065
     Dates: start: 200102
  2. MYCOPHENOLATE MOFETIL [Suspect]
     Active Substance: MYCOPHENOLATE MOFETIL
     Indication: Nephroangiosclerosis
  3. PREDNISONE [Suspect]
     Active Substance: PREDNISONE
     Indication: Immunosuppressant drug therapy
     Dosage: 20 MG, DAILY
     Route: 065
     Dates: start: 200102
  4. PREDNISONE [Suspect]
     Active Substance: PREDNISONE
     Indication: Nephroangiosclerosis
  5. TACROLIMUS [Suspect]
     Active Substance: TACROLIMUS
     Indication: Immunosuppressant drug therapy
     Dosage: 3 MG, BID
     Route: 065
     Dates: start: 200102
  6. TACROLIMUS [Suspect]
     Active Substance: TACROLIMUS
     Indication: Nephroangiosclerosis

REACTIONS (3)
  - Kaposi^s sarcoma [Unknown]
  - Fungal skin infection [Recovered/Resolved]
  - Skin mass [Recovered/Resolved]

NARRATIVE: CASE EVENT DATE: 20010201
